FAERS Safety Report 24364622 (Version 5)
Quarter: 2024Q4

REPORT INFORMATION
  Report Type: Spontaneous
  Country: CO (occurrence: CO)
  Receive Date: 20240926
  Receipt Date: 20241120
  Transmission Date: 20250115
  Serious: Yes (Other)
  Sender: SANOFI AVENTIS
  Company Number: CO-SA-2024SA275608

PATIENT
  Sex: Male
  Weight: 5.6 kg

DRUGS (7)
  1. DUPIXENT [Suspect]
     Active Substance: DUPILUMAB
     Indication: Nasal polyps
     Dosage: 300 MG, QOW
     Route: 064
     Dates: start: 20230921, end: 202310
  2. DUPIXENT [Suspect]
     Active Substance: DUPILUMAB
     Indication: Dermatitis atopic
  3. CETIRIZINE HYDROCHLORIDE [Concomitant]
     Active Substance: CETIRIZINE HYDROCHLORIDE
     Dosage: 10 MG  DOSE EVERY  AS NECESSARY
     Route: 064
     Dates: start: 202310
  4. BUDESONIDE [Concomitant]
     Active Substance: BUDESONIDE
     Dosage: DOSE EVERY  AS NECESSARY
     Route: 064
     Dates: start: 202310, end: 202312
  5. IRON [Concomitant]
     Active Substance: IRON
     Route: 064
     Dates: start: 202310, end: 202403
  6. FOLIC ACID [Concomitant]
     Active Substance: FOLIC ACID
     Route: 064
     Dates: start: 202310, end: 202312
  7. FERROUS BISGLYCINATE [Concomitant]
     Active Substance: FERROUS BISGLYCINATE
     Indication: Mineral supplementation
     Dosage: 6 DROP (1/12 MILLILITRE) 1 DOSE EVERY 1 DAY
     Route: 048

REACTIONS (3)
  - Foetal growth restriction [Not Recovered/Not Resolved]
  - Foetal exposure during pregnancy [Unknown]
  - Developmental delay [Not Recovered/Not Resolved]

NARRATIVE: CASE EVENT DATE: 20240301
